FAERS Safety Report 8260306-5 (Version None)
Quarter: 2012Q2

REPORT INFORMATION
  Report Type: 
  Country: None (occurrence: None)
  Receive Date: 20120404
  Receipt Date: 20120402
  Transmission Date: 20120825
  Serious: Yes (Hospitalization, Other)
  Sender: FDA-Public Use
  Company Number: US-GILEAD-2012-0049932

PATIENT
  Sex: Female

DRUGS (2)
  1. LETAIRIS [Suspect]
     Indication: PULMONARY HYPERTENSION
     Dosage: 10 MG, UNK
     Route: 048
     Dates: start: 20081125
  2. LETAIRIS [Suspect]
     Indication: SCLERODERMA

REACTIONS (4)
  - DYSPNOEA [None]
  - NON-HODGKIN'S LYMPHOMA [None]
  - CHEMOTHERAPY [None]
  - LYMPHOMA [None]
